FAERS Safety Report 4628396-6 (Version None)
Quarter: 2005Q2

REPORT INFORMATION
  Report Type: 
  Country: None (occurrence: None)
  Receive Date: 20050401
  Receipt Date: 20050322
  Transmission Date: 20051028
  Serious: Yes (Hospitalization)
  Sender: FDA-Public Use
  Company Number: 20052246

PATIENT
  Sex: Male

DRUGS (1)
  1. LIORESAL INTRATHECAN (BACLOFEN INJECTION) [Suspect]
     Indication: MUSCLE SPASTICITY
     Dosage: MCG, DAILY, INTRATHECAL
     Route: 039

REACTIONS (9)
  - CYSTITIS [None]
  - DRUG WITHDRAWAL SYNDROME [None]
  - FAILURE OF IMPLANT [None]
  - HEART RATE INCREASED [None]
  - HYPERTONIA [None]
  - MUSCLE SPASMS [None]
  - MUSCLE SPASTICITY [None]
  - PELVIC ABSCESS [None]
  - SEPSIS [None]
